APPROVED DRUG PRODUCT: LANSOPRAZOLE
Active Ingredient: LANSOPRAZOLE
Strength: 15MG
Dosage Form/Route: CAPSULE, DELAYED REL PELLETS;ORAL
Application: A077255 | Product #001 | TE Code: AB
Applicant: TEVA PHARMACEUTICALS USA
Approved: Nov 10, 2009 | RLD: No | RS: No | Type: RX